FAERS Safety Report 8240219-5 (Version None)
Quarter: 2012Q1

REPORT INFORMATION
  Report Type: 
  Country: None (occurrence: None)
  Receive Date: 20120328
  Receipt Date: 20120326
  Transmission Date: 20120608
  Serious: Yes (Disabling, Other)
  Sender: FDA-Public Use
  Company Number: CA-BAYER-2012-015270

PATIENT
  Age: 33 Year
  Sex: Female
  Weight: 45.805 kg

DRUGS (1)
  1. CIPROFLOXACIN HCL [Suspect]
     Indication: URINARY TRACT INFECTION
     Dosage: 2500 MG, QD
     Route: 048
     Dates: start: 20110910, end: 20110912

REACTIONS (10)
  - HEART RATE INCREASED [None]
  - DEPRESSION [None]
  - HEADACHE [None]
  - NERVOUSNESS [None]
  - ANXIETY [None]
  - NIGHTMARE [None]
  - DECREASED APPETITE [None]
  - HEART RATE IRREGULAR [None]
  - INSOMNIA [None]
  - SUICIDAL IDEATION [None]
